FAERS Safety Report 8955677 (Version 2)
Quarter: 2012Q4

REPORT INFORMATION
  Report Type: Report from Study
  Country: DE (occurrence: DE)
  Receive Date: 20121207
  Receipt Date: 20121219
  Transmission Date: 20130627
  Serious: Yes (Hospitalization)
  Sender: FDA-Public Use
  Company Number: DE-ROCHE-1160945

PATIENT
  Age: 64 Year
  Sex: Female
  Weight: 61 kg

DRUGS (4)
  1. TRASTUZUMAB [Suspect]
     Indication: BREAST CANCER
     Dosage: loading dose
     Route: 042
     Dates: start: 20120618
  2. TRASTUZUMAB [Suspect]
     Dosage: maintanence dose
     Route: 042
  3. PERTUZUMAB [Suspect]
     Indication: BREAST CANCER
     Dosage: loading dose
     Route: 042
     Dates: start: 20120626
  4. PERTUZUMAB [Suspect]
     Dosage: maintanence dose
     Route: 042

REACTIONS (1)
  - Myocardial infarction [Recovered/Resolved]
